FAERS Safety Report 24193670 (Version 1)
Quarter: 2024Q3

REPORT INFORMATION
  Report Type: Spontaneous
  Country: US (occurrence: US)
  Receive Date: 20240809
  Receipt Date: 20240809
  Transmission Date: 20241017
  Serious: Yes (Hospitalization)
  Sender: RANBAXY
  Company Number: US-SUN PHARMACEUTICAL INDUSTRIES LTD-2024R1-461449

PATIENT
  Age: 18 Month
  Sex: Male

DRUGS (1)
  1. ALBUTEROL [Suspect]
     Active Substance: ALBUTEROL
     Indication: Respiratory distress
     Dosage: 2.5 MILLIGRAM
     Route: 065

REACTIONS (1)
  - Accelerated idioventricular rhythm [Unknown]
